FAERS Safety Report 16504059 (Version 1)
Quarter: 2019Q3

REPORT INFORMATION
  Report Type: Spontaneous
  Country: US (occurrence: US)
  Receive Date: 20190701
  Receipt Date: 20190701
  Transmission Date: 20191004
  Serious: No
  Sender: FDA-Public Use
  Company Number: US-GALDERMA-US19010805

PATIENT
  Age: 29 Year
  Sex: Female

DRUGS (13)
  1. PROACTIV MD ADAPALENE ACNE TREATMENT [Suspect]
     Active Substance: ADAPALENE
     Indication: ACNE
  2. PROACTIV MD BALANCING TONER [Concomitant]
     Active Substance: COSMETICS
     Indication: ACNE
  3. VITAMINS [Concomitant]
     Active Substance: VITAMINS
  4. PROACTIV MD BALANCING TONER [Concomitant]
     Active Substance: COSMETICS
     Indication: ACNE CYSTIC
     Route: 061
     Dates: start: 20190212, end: 20190214
  5. PROACTIV GREEN TEA MOISTURIZER [Concomitant]
     Active Substance: COSMETICS
     Indication: ACNE CYSTIC
     Route: 061
     Dates: start: 20190212, end: 20190214
  6. PROACTIV MD DAILY OIL CONTROL SPF 30 [Suspect]
     Active Substance: AVOBENZONE\OCTISALATE\OCTOCRYLENE
     Indication: ACNE
  7. PROACTIV GREEN TEA MOISTURIZER [Concomitant]
     Active Substance: COSMETICS
     Indication: ACNE
  8. PROACTIV MD ADAPALENE ACNE TREATMENT [Suspect]
     Active Substance: ADAPALENE
     Indication: ACNE CYSTIC
     Dosage: 0.1%
     Route: 061
     Dates: start: 20190212, end: 20190214
  9. PROACTIV MD DAILY OIL CONTROL SPF 30 [Suspect]
     Active Substance: AVOBENZONE\OCTISALATE\OCTOCRYLENE
     Indication: ACNE CYSTIC
     Route: 061
     Dates: start: 20190212, end: 20190214
  10. PROACTIV EYE BRIGHTENING SERUM [Concomitant]
     Active Substance: COSMETICS
     Indication: ACNE
  11. PROACTIV MD DEEP CLEANSING FACE WASH [Concomitant]
     Active Substance: COSMETICS
     Indication: ACNE CYSTIC
     Route: 061
     Dates: start: 20190212, end: 20190214
  12. PROACTIV EYE BRIGHTENING SERUM [Concomitant]
     Active Substance: COSMETICS
     Indication: ACNE CYSTIC
     Route: 061
     Dates: start: 20190212, end: 20190214
  13. PROACTIV MD DEEP CLEANSING FACE WASH [Concomitant]
     Active Substance: COSMETICS
     Indication: ACNE

REACTIONS (6)
  - Erythema [Recovering/Resolving]
  - Skin discolouration [Recovering/Resolving]
  - Skin irritation [Recovering/Resolving]
  - Skin exfoliation [Recovering/Resolving]
  - Dry skin [Recovering/Resolving]
  - Skin burning sensation [Recovering/Resolving]

NARRATIVE: CASE EVENT DATE: 20190212
